FAERS Safety Report 5258357-8 (Version None)
Quarter: 2007Q1

REPORT INFORMATION
  Report Type: 
  Country: None (occurrence: None)
  Receive Date: 20061117
  Receipt Date: 20060323
  Transmission Date: 20070707
  Serious: Yes (Hospitalization)
  Sender: FDA-Public Use
  Company Number: US-JNJFOC-20060305411

PATIENT
  Age: 46 Year
  Sex: Female
  Weight: 65.7716 kg

DRUGS (3)
  1. LEVAQUIN [Suspect]
     Indication: PLEURISY
     Dosage: 500 MG, 1 IN 1 DAY, ORAL
     Route: 048
     Dates: start: 20060313, end: 20060320
  2. LEVAQUIN [Suspect]
     Indication: PNEUMONIA
     Dosage: 500 MG, 1 IN 1 DAY, ORAL
     Route: 048
     Dates: start: 20060313, end: 20060320
  3. METHYLPREDNISOLONE [Concomitant]

REACTIONS (6)
  - ARTHRALGIA [None]
  - CONSTIPATION [None]
  - ERYTHEMA [None]
  - HEART RATE INCREASED [None]
  - MUSCLE SPASMS [None]
  - PAIN IN EXTREMITY [None]
